FAERS Safety Report 6642409-1 (Version None)
Quarter: 2010Q1

REPORT INFORMATION
  Report Type: 
  Country: None (occurrence: None)
  Receive Date: 20100316
  Receipt Date: 20100309
  Transmission Date: 20100710
  Serious: Yes (Other)
  Sender: FDA-Public Use
  Company Number: 2009SP041486

PATIENT
  Age: 65 Year
  Sex: Female

DRUGS (3)
  1. DESLORATADINE AND PSEUDOEPHEDRINE SULFATE [Suspect]
     Indication: RHINITIS
     Dosage: 2.5 MG;BID;PO
     Route: 048
     Dates: start: 20091125, end: 20091128
  2. CLARITHROMYCIN [Concomitant]
  3. EXPECTORAN [Concomitant]

REACTIONS (1)
  - ANOSMIA [None]
